FAERS Safety Report 20638163 (Version 1)
Quarter: 2022Q1

REPORT INFORMATION
  Report Type: Spontaneous
  Country: US (occurrence: None)
  Receive Date: 20220325
  Receipt Date: 20220325
  Transmission Date: 20220423
  Serious: No
  Sender: FDA-Public Use
  Company Number: None

PATIENT
  Age: 78 Year
  Sex: Female
  Weight: 74.8 kg

DRUGS (1)
  1. EVUSHELD [Suspect]
     Active Substance: CILGAVIMAB\TIXAGEVIMAB
     Indication: COVID-19 prophylaxis
     Dosage: OTHER FREQUENCY : EVERY 6 MONTHS;?
     Route: 030

REACTIONS (2)
  - Infusion related reaction [None]
  - Chest discomfort [None]

NARRATIVE: CASE EVENT DATE: 20220324
